FAERS Safety Report 20961479 (Version 8)
Quarter: 2022Q3

REPORT INFORMATION
  Report Type: Report from Study
  Country: CZ (occurrence: None)
  Receive Date: 20220615
  Receipt Date: 20220822
  Transmission Date: 20221026
  Serious: Yes (Hospitalization)
  Sender: FDA-Public Use
  Company Number: CZ-Eisai Medical Research-EC-2022-116817

PATIENT
  Age: 76 Year
  Sex: Female
  Weight: 54 kg

DRUGS (10)
  1. LENVATINIB [Suspect]
     Active Substance: LENVATINIB
     Indication: Clear cell renal cell carcinoma
     Route: 048
     Dates: start: 20220323, end: 20220606
  2. LENVATINIB [Suspect]
     Active Substance: LENVATINIB
     Route: 048
     Dates: start: 20220620
  3. PEMBROLIZUMAB [Suspect]
     Active Substance: PEMBROLIZUMAB
     Indication: Clear cell renal cell carcinoma
     Route: 041
     Dates: start: 20220323, end: 20220504
  4. MOXONIDINE [Concomitant]
     Active Substance: MOXONIDINE
     Dates: start: 201001, end: 20220607
  5. INDAPAMIDE\PERINDOPRIL ERBUMINE [Concomitant]
     Active Substance: INDAPAMIDE\PERINDOPRIL ERBUMINE
     Dates: start: 201001, end: 20220607
  6. ACECOR [ACEBUTOLOL HYDROCHLORIDE] [Concomitant]
     Dates: start: 201001, end: 20220607
  7. COMBIGAN [Concomitant]
     Active Substance: BRIMONIDINE TARTRATE\TIMOLOL MALEATE
     Dates: start: 201601
  8. SIMVASTATIN [Concomitant]
     Active Substance: SIMVASTATIN
     Dates: start: 201801, end: 20220607
  9. GUTALAX [Concomitant]
     Dates: start: 202111, end: 20220601
  10. ALLOPURINOL [Concomitant]
     Active Substance: ALLOPURINOL
     Dates: start: 20220504, end: 20220524

REACTIONS (1)
  - Diarrhoea [Recovered/Resolved]

NARRATIVE: CASE EVENT DATE: 20220518
